FAERS Safety Report 15223388 (Version 1)
Quarter: 2018Q3

REPORT INFORMATION
  Report Type: Report from Study
  Country: IT (occurrence: IT)
  Receive Date: 20180731
  Receipt Date: 20180731
  Transmission Date: 20181010
  Serious: Yes (Other)
  Sender: FDA-Public Use
  Company Number: IT-BIOVITRUM-2018BV000511

PATIENT
  Age: 6 Year
  Sex: Male
  Weight: 30 kg

DRUGS (3)
  1. ELOCTA [Suspect]
     Active Substance: EFMOROCTOCOG ALFA
     Indication: FACTOR VIII DEFICIENCY
     Route: 065
  2. ELOCTA [Suspect]
     Active Substance: EFMOROCTOCOG ALFA
     Dosage: LAST THREE MONTHS OF ON DEMAND
     Route: 065
     Dates: end: 201712
  3. ELOCTA [Suspect]
     Active Substance: EFMOROCTOCOG ALFA
     Route: 065
     Dates: start: 201712

REACTIONS (1)
  - Factor VIII inhibition [Recovered/Resolved]

NARRATIVE: CASE EVENT DATE: 201606
